FAERS Safety Report 6688333-X (Version None)
Quarter: 2010Q2

REPORT INFORMATION
  Report Type: 
  Country: None (occurrence: None)
  Receive Date: 20100420
  Receipt Date: 20100408
  Transmission Date: 20101027
  Serious: Yes (Hospitalization, Disabling)
  Sender: FDA-Public Use
  Company Number: PHEH2010US03292

PATIENT
  Sex: Male

DRUGS (4)
  1. GLEEVEC [Suspect]
     Indication: CHRONIC MYELOID LEUKAEMIA
     Dosage: 400 MG, QD
     Route: 048
     Dates: start: 20100121
  2. ZOCOR [Concomitant]
  3. ZESTRIL [Concomitant]
  4. COUMADIN [Concomitant]

REACTIONS (8)
  - BLOOD CHOLESTEROL INCREASED [None]
  - CELLULITIS [None]
  - GANGRENE [None]
  - HYPERTENSION [None]
  - NAIL DISORDER [None]
  - OEDEMA PERIPHERAL [None]
  - PERIPHERAL ISCHAEMIA [None]
  - TOE AMPUTATION [None]
